FAERS Safety Report 7967639-8 (Version None)
Quarter: 2011Q4

REPORT INFORMATION
  Report Type: 
  Country: None (occurrence: None)
  Receive Date: 20111207
  Receipt Date: 20111129
  Transmission Date: 20120403
  Serious: No
  Sender: FDA-Public Use
  Company Number: 2011-01319

PATIENT
  Age: 57 Year
  Sex: Female

DRUGS (2)
  1. ZICAM, UNSPECIFIED NASAL PRODUCT [Suspect]
     Indication: NASOPHARYNGITIS
     Dosage: 1 SPRAY INTO EACH NOSTRIL DAILY
     Route: 045
  2. ZICAM ALLERGY RELIEF NASAL GEL [Suspect]
     Indication: NASOPHARYNGITIS
     Dosage: 1 SPRAY INTO EACH NOSTRIL DAILY
     Route: 045
     Dates: start: 20101201, end: 20110227

REACTIONS (2)
  - AGEUSIA [None]
  - ANOSMIA [None]
